FAERS Safety Report 21312076 (Version 1)
Quarter: 2022Q3

REPORT INFORMATION
  Report Type: Spontaneous
  Country: US (occurrence: None)
  Receive Date: 20220909
  Receipt Date: 20220909
  Transmission Date: 20221026
  Serious: No
  Sender: FDA-Public Use
  Company Number: US-ARIS GLOBAL-202204-0623

PATIENT
  Sex: Female

DRUGS (24)
  1. OXERVATE [Suspect]
     Active Substance: CENEGERMIN-BKBJ
     Indication: Neurotrophic keratopathy
     Route: 047
     Dates: start: 20220309
  2. OXERVATE [Suspect]
     Active Substance: CENEGERMIN-BKBJ
     Indication: Punctate keratitis
  3. OXERVATE [Suspect]
     Active Substance: CENEGERMIN-BKBJ
     Indication: Keratitis
  4. BIOTIN [Concomitant]
     Active Substance: BIOTIN
  5. MONTELUKAST SODIUM [Concomitant]
     Active Substance: MONTELUKAST SODIUM
  6. PRAVASTATIN SODIUM [Concomitant]
     Active Substance: PRAVASTATIN SODIUM
  7. PANTOPRAZOLE SODIUM [Concomitant]
     Active Substance: PANTOPRAZOLE SODIUM
  8. LEVOTHYROXINE [Concomitant]
     Active Substance: LEVOTHYROXINE
  9. METHENAMINE HIPPURATE [Concomitant]
     Active Substance: METHENAMINE HIPPURATE
  10. METOPROLOL-HYDROCHLOROTHIAZIDE [Concomitant]
  11. PRIMIDONE [Concomitant]
     Active Substance: PRIMIDONE
  12. LISINOPRIL AND HYDROCHLOROTHIAZIDE [Concomitant]
     Active Substance: HYDROCHLOROTHIAZIDE\LISINOPRIL
  13. MYRBETRIQ [Concomitant]
     Active Substance: MIRABEGRON
  14. HYDROCHLOROTHIAZIDE [Concomitant]
     Active Substance: HYDROCHLOROTHIAZIDE
  15. JANUVIA [Concomitant]
     Active Substance: SITAGLIPTIN PHOSPHATE
  16. FERROUS SULFATE [Concomitant]
     Active Substance: FERROUS SULFATE
  17. IRON [Concomitant]
     Active Substance: IRON
  18. PROBIOTIC BLEND [Concomitant]
     Dosage: 2B CELL-50
  19. B12 ACTIVE [Concomitant]
  20. ZYRTEC [Concomitant]
     Active Substance: CETIRIZINE HYDROCHLORIDE
  21. ESTRADIOL [Concomitant]
     Active Substance: ESTRADIOL
  22. METFORMIN ER GASTRIC [Concomitant]
  23. VITAMINS [Concomitant]
     Active Substance: VITAMINS
  24. TYLENOL EXTRA STRENGTH [Concomitant]
     Active Substance: ACETAMINOPHEN

REACTIONS (4)
  - Product administration error [Unknown]
  - Eye irritation [Unknown]
  - Product administered at inappropriate site [Unknown]
  - Eye pain [Unknown]
